FAERS Safety Report 9656744 (Version 1)
Quarter: 2013Q4

REPORT INFORMATION
  Report Type: Spontaneous
  Country: US (occurrence: US)
  Receive Date: 20131030
  Receipt Date: 20131030
  Transmission Date: 20140711
  Serious: No
  Sender: FDA-Public Use
  Company Number: US-TEVA-440915USA

PATIENT
  Sex: 0

DRUGS (1)
  1. AZILECT [Suspect]
     Indication: PARKINSON^S DISEASE
     Route: 048

REACTIONS (1)
  - Insomnia [Unknown]
